FAERS Safety Report 7223686-5 (Version None)
Quarter: 2011Q1

REPORT INFORMATION
  Report Type: 
  Country: None (occurrence: None)
  Receive Date: 20110112
  Receipt Date: 20101014
  Transmission Date: 20110831
  Serious: No
  Sender: FDA-Public Use
  Company Number: US-ALLERGAN-1013240US

PATIENT
  Age: 74 Year
  Sex: Female

DRUGS (5)
  1. ZOCOR [Concomitant]
  2. RESTASIS [Suspect]
     Indication: DRY EYE
     Route: 047
  3. ATENOLOL [Concomitant]
  4. UNSPECIFIED PILL [Concomitant]
     Indication: OSTEOPOROSIS
  5. SYSTANE ULTRA UD [Concomitant]
     Indication: DRY EYE
     Dosage: PRN-QID
     Route: 047

REACTIONS (1)
  - EYE IRRITATION [None]
